FAERS Safety Report 6256078-6 (Version None)
Quarter: 2009Q2

REPORT INFORMATION
  Report Type: 
  Country: None (occurrence: None)
  Receive Date: 20090630
  Receipt Date: 20090630
  Transmission Date: 20091009
  Serious: Yes (Other)
  Sender: FDA-Public Use
  Company Number: None

PATIENT
  Age: 82 Year
  Sex: Female
  Weight: 79.8331 kg

DRUGS (1)
  1. LYRICA [Suspect]
     Indication: PAIN
     Dosage: 1 PILL EACH EVENING PO
     Route: 048
     Dates: start: 20090605, end: 20090606

REACTIONS (6)
  - ABNORMAL BEHAVIOUR [None]
  - ASTHENIA [None]
  - DISORIENTATION [None]
  - DYSSTASIA [None]
  - IRRITABILITY [None]
  - PERSONALITY CHANGE [None]
